FAERS Safety Report 7906137-4 (Version None)
Quarter: 2011Q4

REPORT INFORMATION
  Report Type: 
  Country: None (occurrence: None)
  Receive Date: 20111110
  Receipt Date: 20110822
  Transmission Date: 20120403
  Serious: Yes (Death)
  Sender: FDA-Public Use
  Company Number: US-ELI_LILLY_AND_COMPANY-US200908006254

PATIENT
  Sex: Male
  Weight: 141.95 kg

DRUGS (8)
  1. OPANA [Interacting]
     Indication: RHEUMATOID ARTHRITIS
     Dosage: 30 MG, 2/D
     Route: 048
     Dates: start: 20090202, end: 20090201
  2. NABUMETONE [Concomitant]
     Indication: ARTHRITIS
     Dosage: 750 MG, 2/D
     Route: 048
     Dates: start: 20080619, end: 20090201
  3. LORATADINE [Concomitant]
     Indication: RHINITIS ALLERGIC
     Dosage: 10 MG, DAILY (1/D)
     Route: 048
     Dates: start: 20081031, end: 20090201
  4. ANDRODERM [Concomitant]
     Indication: HYPOGONADISM
     Dosage: 5 MG, DAILY (1/D)
     Route: 062
     Dates: start: 20080609, end: 20090201
  5. LISINOPRIL AND HYDROCHLOROTHIAZIDE [Concomitant]
     Indication: HYPERTENSION
     Dosage: UNK, DAILY (1/D)
     Route: 048
     Dates: start: 20070404, end: 20090201
  6. FOLIC ACID [Concomitant]
     Dosage: 1 MG, DAILY (1/D)
     Route: 048
     Dates: start: 20070414, end: 20090201
  7. FLUOXETINE HCL [Suspect]
     Indication: DEPRESSION
     Dosage: 40 MG, DAILY (1/D)
     Route: 048
     Dates: start: 20071008, end: 20090201
  8. ACETAMINOPHEN AND HYDROCODONE BITARTRATE [Concomitant]
     Indication: PAIN
     Dosage: UNK, 3/D
     Route: 065
     Dates: end: 20090101

REACTIONS (5)
  - DRUG INTERACTION [None]
  - PULMONARY CONGESTION [None]
  - PAIN [None]
  - HEPATIC CONGESTION [None]
  - TOXICITY TO VARIOUS AGENTS [None]
